FAERS Safety Report 12374640 (Version 3)
Quarter: 2016Q2

REPORT INFORMATION
  Report Type: Spontaneous
  Country: IT (occurrence: IT)
  Receive Date: 20160517
  Receipt Date: 20160616
  Transmission Date: 20160815
  Serious: Yes (Other)
  Sender: FDA-Public Use
  Company Number: IT-ROCHE-1758829

PATIENT
  Age: 59 Year
  Sex: Female

DRUGS (3)
  1. ROACTEMRA [Suspect]
     Active Substance: TOCILIZUMAB
     Indication: RHEUMATOID ARTHRITIS
     Dosage: 20 MG/ML CONCENTRATE VIAL (GLASS) 4 ML^ 1 VIAL
     Route: 042
     Dates: start: 20140401, end: 20160512
  2. ROACTEMRA [Suspect]
     Active Substance: TOCILIZUMAB
     Dosage: 20 MG/ML CONCENTRATE VIAL (GLASS) 20 ML^ 1 VIAL
     Route: 042
     Dates: start: 20140401, end: 20160512
  3. METHOTREXATE (METHOTREXATE SODIUM) [Concomitant]
     Active Substance: METHOTREXATE SODIUM
     Dosage: 50 MG/ML, PRE-FILLED SYRINGES^ 4 X 0.20 ML SYRINGE
     Route: 065

REACTIONS (3)
  - Pruritus generalised [Recovered/Resolved]
  - Erythema [Recovered/Resolved]
  - Chest discomfort [Recovered/Resolved]

NARRATIVE: CASE EVENT DATE: 20160512
